FAERS Safety Report 7563044-7 (Version None)
Quarter: 2011Q2

REPORT INFORMATION
  Report Type: 
  Country: None (occurrence: None)
  Receive Date: 20110621
  Receipt Date: 20110621
  Transmission Date: 20111010
  Serious: No
  Sender: FDA-Public Use
  Company Number: None

PATIENT
  Sex: Female
  Weight: 85.45 kg

DRUGS (3)
  1. IFOSFAMIDE [Suspect]
     Dosage: 5.46G
  2. TAXOL [Suspect]
     Dosage: 263MG
  3. NEULASTA [Suspect]
     Dosage: 6MG

REACTIONS (2)
  - NEUTROPHIL COUNT DECREASED [None]
  - HAEMATURIA [None]
